FAERS Safety Report 6057117-8 (Version None)
Quarter: 2009Q1

REPORT INFORMATION
  Report Type: 
  Country: None (occurrence: None)
  Receive Date: 20090129
  Receipt Date: 20090123
  Transmission Date: 20090719
  Serious: Yes (Life-Threatening, Hospitalization)
  Sender: FDA-Public Use
  Company Number: US-ROCHE-598227

PATIENT
  Sex: Male
  Weight: 83.9 kg

DRUGS (6)
  1. PEG-INTERFERON A-2A (RO 25-8310) [Suspect]
     Indication: HEPATITIS C
     Dosage: FORM: PRE FILLED SYRINGE
     Route: 058
     Dates: start: 20080615, end: 20081027
  2. RIBAPAK [Suspect]
     Indication: HEPATITIS C
     Route: 065
     Dates: start: 20080615, end: 20081027
  3. DIOVAN HCT [Concomitant]
     Route: 048
  4. METFORMIN HCL [Concomitant]
     Route: 048
  5. LIPITOR [Concomitant]
     Route: 048
  6. INSULIN [Concomitant]
     Route: 058

REACTIONS (1)
  - HEPATIC CANCER METASTATIC [None]
